FAERS Safety Report 13954550 (Version 2)
Quarter: 2017Q4

REPORT INFORMATION
  Report Type: Report from Study
  Country: None (occurrence: US)
  Receive Date: 20170911
  Receipt Date: 20171006
  Transmission Date: 20180320
  Serious: No
  Sender: FDA-Public Use
  Company Number: US-ABBVIE-17K-163-2096272-00

PATIENT
  Sex: Male
  Weight: 72.64 kg

DRUGS (7)
  1. HUMIRA [Suspect]
     Active Substance: ADALIMUMAB
     Route: 058
     Dates: start: 201604
  2. LORAZEPAM. [Concomitant]
     Active Substance: LORAZEPAM
     Indication: INSOMNIA
  3. VICODIN ES [Concomitant]
     Active Substance: ACETAMINOPHEN\HYDROCODONE BITARTRATE
     Indication: PRODUCT USED FOR UNKNOWN INDICATION
  4. CENTRUM SILVER OVER 50 [Concomitant]
     Indication: PRODUCT USED FOR UNKNOWN INDICATION
  5. HUMIRA [Suspect]
     Active Substance: ADALIMUMAB
     Indication: RHEUMATOID ARTHRITIS
     Dosage: SOMETIMES EVERY OTHER WEEK, OR EVERY 3 WEEKS OR STOP FOR A COUPLE OF MONTHS AT A TIME.
     Route: 058
     Dates: start: 2010
  6. HUMIRA [Suspect]
     Active Substance: ADALIMUMAB
     Dosage: SOMETIMES EVERY OTHER WEEK, OR EVERY 3 WEEKS OR STOP FOR A COUPLE OF MONTHS AT A TIME.
     Route: 058
     Dates: end: 2012
  7. LORAZEPAM. [Concomitant]
     Active Substance: LORAZEPAM
     Indication: ANXIETY

REACTIONS (9)
  - Arthralgia [Recovered/Resolved]
  - Myositis [Not Recovered/Not Resolved]
  - Anticipatory anxiety [Not Recovered/Not Resolved]
  - Dry throat [Not Recovered/Not Resolved]
  - Influenza like illness [Recovered/Resolved]
  - Dysphagia [Not Recovered/Not Resolved]
  - Throat tightness [Not Recovered/Not Resolved]
  - Intentional product misuse [Not Recovered/Not Resolved]
  - Myalgia [Recovered/Resolved]

NARRATIVE: CASE EVENT DATE: 2010
